FAERS Safety Report 13270553 (Version 3)
Quarter: 2017Q2

REPORT INFORMATION
  Report Type: Spontaneous
  Country: US (occurrence: US)
  Receive Date: 20170224
  Receipt Date: 20170405
  Transmission Date: 20170830
  Serious: Yes (Death, Hospitalization, Other)
  Sender: FDA-Public Use
  Company Number: US-BAUSCH-BL-2017-004624

PATIENT
  Age: 75 Year
  Sex: Male
  Weight: 62.65 kg

DRUGS (1)
  1. XIFAXAN [Suspect]
     Active Substance: RIFAXIMIN
     Indication: AMMONIA INCREASED
     Route: 065
     Dates: start: 201606

REACTIONS (7)
  - Metastases to liver [Not Recovered/Not Resolved]
  - Gastrointestinal motility disorder [Not Recovered/Not Resolved]
  - Pneumonia [Fatal]
  - Constipation [Not Recovered/Not Resolved]
  - Off label use [Unknown]
  - Coma hepatic [Not Recovered/Not Resolved]
  - Pancreatic carcinoma [Fatal]

NARRATIVE: CASE EVENT DATE: 201606
